FAERS Safety Report 8347491-1 (Version None)
Quarter: 2012Q2

REPORT INFORMATION
  Report Type: 
  Country: None (occurrence: None)
  Receive Date: 20120509
  Receipt Date: 20120425
  Transmission Date: 20120825
  Serious: Yes (Other)
  Sender: FDA-Public Use
  Company Number: US-JNJFOC-20120405241

PATIENT
  Sex: Female

DRUGS (1)
  1. NUCYNTA [Suspect]
     Indication: PAIN
     Route: 065

REACTIONS (3)
  - UNRESPONSIVE TO STIMULI [None]
  - SOMNOLENCE [None]
  - DISORIENTATION [None]
